FAERS Safety Report 17488527 (Version 1)
Quarter: 2020Q1

REPORT INFORMATION
  Report Type: Spontaneous
  Country: US (occurrence: US)
  Receive Date: 20200220
  Receipt Date: 20200220
  Transmission Date: 20200409
  Serious: Yes (Hospitalization)
  Sender: FDA-Public Use
  Company Number: None

PATIENT
  Age: 57 Year
  Sex: Male

DRUGS (9)
  1. PHOSLO CAP [Concomitant]
  2. CINACALCET HCL [Concomitant]
     Active Substance: CINACALCET HYDROCHLORIDE
  3. SENSIPAR TAB [Concomitant]
  4. VANCOMYCIN/DEX INJ [Concomitant]
  5. RENAL TAB [Concomitant]
  6. FOLIC ACID TAB [Concomitant]
  7. CINACALCET HCI 30MG TAB [Suspect]
     Active Substance: CINACALCET HYDROCHLORIDE
     Route: 048
     Dates: start: 20190705, end: 20200219
  8. VITAMIN B12 TAB [Concomitant]
  9. LISINOPRIL TAB [Concomitant]

REACTIONS (1)
  - Transplant [None]

NARRATIVE: CASE EVENT DATE: 20200208
